FAERS Safety Report 18500986 (Version 6)
Quarter: 2021Q2

REPORT INFORMATION
  Report Type: Spontaneous
  Country: US (occurrence: US)
  Receive Date: 20201113
  Receipt Date: 20210426
  Transmission Date: 20210717
  Serious: Yes (Other)
  Sender: FDA-Public Use
  Company Number: US-GLAXOSMITHKLINE-US2020AMR224566

PATIENT
  Sex: Female

DRUGS (8)
  1. ZEJULA [Suspect]
     Active Substance: NIRAPARIB
     Dosage: UNK (100MG ALTERNATING WITH 200MG Q,O.D)
  2. ZEJULA [Suspect]
     Active Substance: NIRAPARIB
     Dosage: UNK (100MG ALTERNATING WITH 200MG
     Dates: start: 20201202, end: 20210208
  3. ZEJULA [Suspect]
     Active Substance: NIRAPARIB
     Indication: OVARIAN CANCER
     Dosage: 200 MG, QD
     Dates: start: 20201102, end: 20201106
  4. COVID?19 VACCINE NOS. [Concomitant]
     Active Substance: COVID-19 VACCINE NOS
     Indication: COVID-19 PROPHYLAXIS
     Dosage: UNK
  5. ZEJULA [Suspect]
     Active Substance: NIRAPARIB
     Dosage: 1 DF, QD (1 CAPSULE EVERY OTHER DAY)
     Route: 048
     Dates: start: 20201112
  6. ZEJULA [Suspect]
     Active Substance: NIRAPARIB
     Dosage: 1 DF, QOD (1 CAPSULE EVERY DAY)
     Route: 048
  7. ZEJULA [Suspect]
     Active Substance: NIRAPARIB
     Dosage: 100 MG, Z (EVERY THIRD DAY)
     Dates: start: 20210208
  8. ZEJULA [Suspect]
     Active Substance: NIRAPARIB
     Dosage: 200 MG, QD
     Route: 048
     Dates: end: 202104

REACTIONS (18)
  - Blood pressure increased [Recovered/Resolved]
  - Loss of personal independence in daily activities [Unknown]
  - Decreased appetite [Unknown]
  - Catheter management [Unknown]
  - Tremor [Unknown]
  - Weight decreased [Unknown]
  - Insomnia [Recovering/Resolving]
  - Off label use [Unknown]
  - Dehydration [Unknown]
  - Dysgeusia [Unknown]
  - Neuropathy peripheral [Recovering/Resolving]
  - Ill-defined disorder [Unknown]
  - Constipation [Recovering/Resolving]
  - Insomnia [Unknown]
  - Feeling abnormal [Unknown]
  - Nausea [Unknown]
  - Drug monitoring procedure incorrectly performed [Unknown]
  - Heart rate increased [Not Recovered/Not Resolved]
